FAERS Safety Report 8984206 (Version 3)
Quarter: 2013Q3

REPORT INFORMATION
  Report Type: Spontaneous
  Country: US (occurrence: US)
  Receive Date: 20121226
  Receipt Date: 20130715
  Transmission Date: 20140515
  Serious: Yes (Other)
  Sender: FDA-Public Use
  Company Number: US-ASTRAZENECA-2012SE94556

PATIENT
  Age: 707 Month
  Sex: Female

DRUGS (39)
  1. SEROQUEL [Suspect]
     Indication: POST-TRAUMATIC STRESS DISORDER
     Route: 048
     Dates: start: 20060606, end: 20070215
  2. SEROQUEL [Suspect]
     Indication: MAJOR DEPRESSION
     Route: 048
     Dates: start: 20060606, end: 20070215
  3. SEROQUEL [Suspect]
     Indication: SCHIZOPHRENIA
     Route: 048
     Dates: start: 20060606, end: 20070215
  4. SEROQUEL [Suspect]
     Indication: BIPOLAR DISORDER
     Route: 048
     Dates: start: 20060606, end: 20070215
  5. SEROQUEL [Suspect]
     Indication: POST-TRAUMATIC STRESS DISORDER
     Route: 048
     Dates: start: 20060612
  6. SEROQUEL [Suspect]
     Indication: MAJOR DEPRESSION
     Route: 048
     Dates: start: 20060612
  7. SEROQUEL [Suspect]
     Indication: SCHIZOPHRENIA
     Route: 048
     Dates: start: 20060612
  8. SEROQUEL [Suspect]
     Indication: BIPOLAR DISORDER
     Route: 048
     Dates: start: 20060612
  9. SEROQUEL [Suspect]
     Indication: POST-TRAUMATIC STRESS DISORDER
     Route: 048
     Dates: start: 20070329, end: 20070329
  10. SEROQUEL [Suspect]
     Indication: MAJOR DEPRESSION
     Route: 048
     Dates: start: 20070329, end: 20070329
  11. SEROQUEL [Suspect]
     Indication: SCHIZOPHRENIA
     Route: 048
     Dates: start: 20070329, end: 20070329
  12. SEROQUEL [Suspect]
     Indication: BIPOLAR DISORDER
     Route: 048
     Dates: start: 20070329, end: 20070329
  13. RISPERIDONE/RISPERDAL [Suspect]
     Indication: POST-TRAUMATIC STRESS DISORDER
     Route: 065
     Dates: start: 200704, end: 200906
  14. RISPERIDONE/RISPERDAL [Suspect]
     Indication: MAJOR DEPRESSION
     Route: 065
     Dates: start: 200704, end: 200906
  15. RISPERIDONE/RISPERDAL [Suspect]
     Indication: SCHIZOPHRENIA
     Route: 065
     Dates: start: 200704, end: 200906
  16. RISPERIDONE/RISPERDAL [Suspect]
     Indication: BIPOLAR DISORDER
     Route: 065
     Dates: start: 200704, end: 200906
  17. RISPERIDONE/RISPERDAL [Suspect]
     Indication: POST-TRAUMATIC STRESS DISORDER
     Route: 065
     Dates: start: 20090714
  18. RISPERIDONE/RISPERDAL [Suspect]
     Indication: MAJOR DEPRESSION
     Route: 065
     Dates: start: 20090714
  19. RISPERIDONE/RISPERDAL [Suspect]
     Indication: SCHIZOPHRENIA
     Route: 065
     Dates: start: 20090714
  20. RISPERIDONE/RISPERDAL [Suspect]
     Indication: BIPOLAR DISORDER
     Route: 065
     Dates: start: 20090714
  21. RISPERIDONE/RISPERDAL [Suspect]
     Indication: POST-TRAUMATIC STRESS DISORDER
     Route: 065
     Dates: start: 200909, end: 201002
  22. RISPERIDONE/RISPERDAL [Suspect]
     Indication: MAJOR DEPRESSION
     Route: 065
     Dates: start: 200909, end: 201002
  23. RISPERIDONE/RISPERDAL [Suspect]
     Indication: SCHIZOPHRENIA
     Route: 065
     Dates: start: 200909, end: 201002
  24. RISPERIDONE/RISPERDAL [Suspect]
     Indication: BIPOLAR DISORDER
     Route: 065
     Dates: start: 200909, end: 201002
  25. RISPERIDONE/RISPERDAL [Suspect]
     Indication: POST-TRAUMATIC STRESS DISORDER
     Route: 065
     Dates: start: 20101004, end: 201101
  26. RISPERIDONE/RISPERDAL [Suspect]
     Indication: MAJOR DEPRESSION
     Route: 065
     Dates: start: 20101004, end: 201101
  27. RISPERIDONE/RISPERDAL [Suspect]
     Indication: SCHIZOPHRENIA
     Route: 065
     Dates: start: 20101004, end: 201101
  28. RISPERIDONE/RISPERDAL [Suspect]
     Indication: BIPOLAR DISORDER
     Route: 065
     Dates: start: 20101004, end: 201101
  29. CITALOPRAM HYDROBROMIDE [Concomitant]
     Dates: start: 20060612
  30. CITALOPRAM HYDROBROMIDE [Concomitant]
     Dates: start: 20071217
  31. CITALOPRAM HYDROBROMIDE [Concomitant]
     Dates: start: 20090714
  32. BUPROPION SR [Concomitant]
     Dates: start: 20090714
  33. AMBIEN [Concomitant]
     Dates: start: 20090714
  34. HYDROXYZINE [Concomitant]
     Indication: ANXIETY
     Dates: start: 20090714
  35. WELLBUTRIN [Concomitant]
     Route: 048
     Dates: start: 20110726
  36. MELATONIN [Concomitant]
     Indication: SLEEP DISORDER
     Dates: start: 20110726
  37. SINEMET [Concomitant]
     Dates: start: 20110726
  38. COGENTIN [Concomitant]
     Dates: start: 20110726
  39. TRAZODONE [Concomitant]
     Dates: start: 20110726

REACTIONS (11)
  - Tardive dyskinesia [Unknown]
  - Diabetes mellitus [Unknown]
  - Schizoaffective disorder bipolar type [Unknown]
  - Fall [Unknown]
  - Head injury [Unknown]
  - Gastrointestinal disorder [Unknown]
  - Urinary incontinence [Unknown]
  - Faecal incontinence [Unknown]
  - Weight increased [Unknown]
  - Parkinsonism [Unknown]
  - Extrapyramidal disorder [Unknown]
